FAERS Safety Report 21726868 (Version 3)
Quarter: 2023Q1

REPORT INFORMATION
  Report Type: Report from Study
  Country: ES (occurrence: ES)
  Receive Date: 20221214
  Receipt Date: 20230210
  Transmission Date: 20230417
  Serious: Yes (Hospitalization, Other)
  Sender: FDA-Public Use
  Company Number: ES-PFIZER INC-PV202200115565

PATIENT
  Age: 49 Year
  Sex: Female
  Weight: 64 kg

DRUGS (5)
  1. BEVACIZUMAB [Suspect]
     Active Substance: BEVACIZUMAB
     Indication: Colorectal cancer metastatic
     Dosage: 320 MG, CYCLIC (EVERY 2 WEEKS), NOT ONGOING
     Route: 041
     Dates: start: 20221107, end: 20221107
  2. FLUOROURACIL [Suspect]
     Active Substance: FLUOROURACIL
     Indication: Colorectal cancer metastatic
     Dosage: 4000.8 MG, CYCLIC (EVERY 2 WEEKS)
     Route: 040
     Dates: start: 20221107, end: 20221107
  3. FLUOROURACIL [Suspect]
     Active Substance: FLUOROURACIL
     Dosage: 666.8 MG, CYCLIC (EVERY 2 WEEKS)
     Route: 041
     Dates: start: 20221107, end: 20221107
  4. OXALIPLATIN [Suspect]
     Active Substance: OXALIPLATIN
     Indication: Colorectal cancer metastatic
     Dosage: 141.71 MG, CYCLIC (EVERY 2 WEEKS), NOT ONGOING
     Route: 041
     Dates: start: 20221107, end: 20221107
  5. LEUCOVORIN [Suspect]
     Active Substance: LEUCOVORIN
     Indication: Colorectal cancer metastatic
     Dosage: 666.8 MG, CYCLIC (EVERY 2 WEEKS)
     Route: 041
     Dates: start: 20221107, end: 20221107

REACTIONS (1)
  - Hepatitis [Recovered/Resolved]

NARRATIVE: CASE EVENT DATE: 20221129
